FAERS Safety Report 24794766 (Version 1)
Quarter: 2024Q4

REPORT INFORMATION
  Report Type: Spontaneous
  Country: JP (occurrence: JP)
  Receive Date: 20241231
  Receipt Date: 20241231
  Transmission Date: 20250114
  Serious: Yes (Hospitalization, Other)
  Sender: JOHNSON AND JOHNSON
  Company Number: JP-JNJFOC-20241240618

PATIENT

DRUGS (1)
  1. TOPIRAMATE [Suspect]
     Active Substance: TOPIRAMATE
     Indication: Epilepsy
     Route: 048

REACTIONS (6)
  - Hospitalisation [Recovered/Resolved]
  - Intellectual disability [Unknown]
  - Hypothermia [Unknown]
  - Injury [Unknown]
  - Dysphagia [Recovered/Resolved]
  - Condition aggravated [Recovered/Resolved]
